FAERS Safety Report 7589656-2 (Version None)
Quarter: 2011Q3

REPORT INFORMATION
  Report Type: 
  Country: None (occurrence: None)
  Receive Date: 20110705
  Receipt Date: 20110622
  Transmission Date: 20111222
  Serious: Yes (Hospitalization, Other)
  Sender: FDA-Public Use
  Company Number: DE-ROCHE-786843

PATIENT
  Age: 68 Year
  Weight: 78 kg

DRUGS (1)
  1. CAPECITABINE [Suspect]
     Route: 065
     Dates: start: 20080121, end: 20080408

REACTIONS (5)
  - FATIGUE [None]
  - RENAL VEIN THROMBOSIS [None]
  - GENERAL PHYSICAL HEALTH DETERIORATION [None]
  - BODY TEMPERATURE INCREASED [None]
  - DECREASED APPETITE [None]
